FAERS Safety Report 18865774 (Version 1)
Quarter: 2021Q1

REPORT INFORMATION
  Report Type: Spontaneous
  Country: US (occurrence: US)
  Receive Date: 20210208
  Receipt Date: 20210208
  Transmission Date: 20210420
  Serious: No
  Sender: FDA-Public Use
  Company Number: US-PFIZER INC-2021002717

PATIENT
  Age: 80 Year
  Sex: Female

DRUGS (2)
  1. TRAZIMERA [Suspect]
     Active Substance: TRASTUZUMAB-QYYP
     Dosage: 433 MG (INJECT 433MG FREQUENCY: X 1)
  2. TRAZIMERA [Suspect]
     Active Substance: TRASTUZUMAB-QYYP
     Dosage: 324 MG, EVERY 3 WEEKS (INJECT 324 FREQUENCY: Q (EVERY) 3 WEEKS)

REACTIONS (3)
  - Asthenia [Unknown]
  - Fatigue [Unknown]
  - Abdominal distension [Unknown]
